FAERS Safety Report 7288116-6 (Version None)
Quarter: 2011Q1

REPORT INFORMATION
  Report Type: 
  Country: None (occurrence: None)
  Receive Date: 20110211
  Receipt Date: 20110203
  Transmission Date: 20110831
  Serious: Yes (Hospitalization)
  Sender: FDA-Public Use
  Company Number: CH-BAYER-2011-010687

PATIENT
  Age: 80 Year
  Sex: Female

DRUGS (18)
  1. ARIXTRA [Suspect]
     Dosage: 2.5 MG, QD
     Route: 058
     Dates: start: 20101209
  2. MARCOUMAR [Suspect]
     Dosage: DAILY DOSE 6 MG
     Route: 048
     Dates: start: 20101211, end: 20101212
  3. ACTOS [Concomitant]
  4. MARCOUMAR [Suspect]
     Indication: PROPHYLAXIS
     Dosage: 1 DF, PRN
     Route: 048
     Dates: start: 20101211, end: 20101214
  5. DAFALGAN [Concomitant]
     Dosage: UNK
     Dates: start: 20101209
  6. ASPIRIN [Suspect]
     Indication: PROPHYLAXIS
     Dosage: 100 MG, QD
     Route: 048
     Dates: start: 20100101
  7. PREDNISONE [Concomitant]
  8. ARIXTRA [Suspect]
     Indication: PROPHYLAXIS
     Dosage: 5 MG, QD
     Route: 058
     Dates: start: 20101209, end: 20101214
  9. FLUOXETINE HCL [Concomitant]
  10. PANTOPRAZOLE [Concomitant]
  11. NOVALGIN [Concomitant]
     Dosage: UNK
     Dates: start: 20101209
  12. BELOC ZOK [Concomitant]
  13. HYDROXYUREA [Concomitant]
  14. LEVEMIR [Concomitant]
  15. MARCOUMAR [Suspect]
     Dosage: DAILY DOSE 3 MG
     Route: 048
     Dates: start: 20101213, end: 20101213
  16. ZYLORIC [Concomitant]
  17. TRIATEC [Concomitant]
  18. ESIDRIX [Concomitant]

REACTIONS (4)
  - HAEMORRHAGIC ANAEMIA [None]
  - INTERNATIONAL NORMALISED RATIO INCREASED [None]
  - POSTOPERATIVE WOUND INFECTION [None]
  - MUSCLE HAEMORRHAGE [None]
